FAERS Safety Report 24297948 (Version 2)
Quarter: 2024Q3

REPORT INFORMATION
  Report Type: Spontaneous
  Country: US (occurrence: US)
  Receive Date: 20240909
  Receipt Date: 20240918
  Transmission Date: 20241016
  Serious: Yes (Hospitalization, Other)
  Sender: NOVARTIS
  Company Number: US-002147023-NVSC2024US179938

PATIENT
  Age: 0 Year
  Sex: Male
  Weight: 4.7 kg

DRUGS (3)
  1. ZOLGENSMA [Suspect]
     Active Substance: ONASEMNOGENE ABEPARVOVEC-XIOI
     Indication: Spinal muscular atrophy
     Dosage: 24.8 ML, ONCE/SINGLE
     Route: 042
     Dates: start: 20240827, end: 20240827
  2. PREDNISOLONE [Concomitant]
     Active Substance: PREDNISOLONE
     Indication: Product used for unknown indication
     Dosage: 4.7 MG, QD
     Route: 048
     Dates: start: 20240826
  3. PEPCID [Concomitant]
     Active Substance: FAMOTIDINE
     Indication: Product used for unknown indication
     Dosage: UNK, QD
     Route: 048
     Dates: start: 20240826

REACTIONS (3)
  - Supraventricular tachycardia [Recovered/Resolved]
  - Tachycardia [Unknown]
  - Vomiting [Unknown]

NARRATIVE: CASE EVENT DATE: 20240831
